FAERS Safety Report 21951198 (Version 1)
Quarter: 2023Q1

REPORT INFORMATION
  Report Type: Spontaneous
  Country: JP (occurrence: JP)
  Receive Date: 20230203
  Receipt Date: 20230203
  Transmission Date: 20230418
  Serious: Yes (Other)
  Sender: FDA-Public Use
  Company Number: JP-ferring-EVA202300090FERRINGPH

PATIENT

DRUGS (3)
  1. DINOPROSTONE [Suspect]
     Active Substance: DINOPROSTONE
     Indication: Induction of cervix ripening
     Route: 067
  2. DINOPROST [Concomitant]
     Active Substance: DINOPROST
     Route: 041
  3. OXYTOCIN [Concomitant]
     Active Substance: OXYTOCIN
     Route: 041

REACTIONS (2)
  - Obstructed labour [Recovered/Resolved]
  - Incorrect product administration duration [Unknown]
